FAERS Safety Report 13592015 (Version 2)
Quarter: 2017Q4

REPORT INFORMATION
  Report Type: Spontaneous
  Country: US (occurrence: US)
  Receive Date: 20170530
  Receipt Date: 20171025
  Transmission Date: 20180320
  Serious: Yes (Hospitalization)
  Sender: FDA-Public Use
  Company Number: US-JNJFOC-20170526542

PATIENT
  Age: 50 Year
  Sex: Male
  Weight: 101.61 kg

DRUGS (3)
  1. STELARA [Suspect]
     Active Substance: USTEKINUMAB
     Indication: PSORIASIS
     Route: 058
     Dates: start: 20170413
  2. OTEZLA [Concomitant]
     Active Substance: APREMILAST
     Route: 065
     Dates: start: 201610
  3. OTEZLA [Concomitant]
     Active Substance: APREMILAST
     Route: 065
     Dates: start: 201608

REACTIONS (1)
  - Diffuse large B-cell lymphoma stage III [Not Recovered/Not Resolved]

NARRATIVE: CASE EVENT DATE: 20170424
